FAERS Safety Report 15106944 (Version 1)
Quarter: 2018Q3

REPORT INFORMATION
  Report Type: Report from Study
  Country: CO (occurrence: CO)
  Receive Date: 20180704
  Receipt Date: 20180704
  Transmission Date: 20181010
  Serious: Yes (Hospitalization)
  Sender: FDA-Public Use
  Company Number: CO-ASTELLAS-2018US028785

PATIENT
  Age: 31 Year
  Sex: Female
  Weight: 57 kg

DRUGS (2)
  1. TACROLIMUS. [Suspect]
     Active Substance: TACROLIMUS
     Indication: RENAL TRANSPLANT
     Dosage: 4 MG (3MG AND 1MG TABLET), UNKNOWN FREQ.
     Route: 065
     Dates: start: 20170713, end: 20180101
  2. TACROLIMUS. [Suspect]
     Active Substance: TACROLIMUS
     Indication: RENAL TRANSPLANT
     Dosage: 4 MG (3MG AND 1MG TABLET), UNKNOWN FREQ.
     Route: 065
     Dates: start: 20170713, end: 20180101

REACTIONS (4)
  - Renal injury [Unknown]
  - Renal transplant failure [Recovered/Resolved with Sequelae]
  - Renal graft infection [Unknown]
  - Escherichia infection [Recovered/Resolved with Sequelae]

NARRATIVE: CASE EVENT DATE: 20170911
